FAERS Safety Report 21149149 (Version 1)
Quarter: 2022Q3

REPORT INFORMATION
  Report Type: Spontaneous
  Country: JP (occurrence: JP)
  Receive Date: 20220729
  Receipt Date: 20220729
  Transmission Date: 20221027
  Serious: Yes (Disabling)
  Sender: FDA-Public Use
  Company Number: JP-OTSUKA-2022_038236

PATIENT
  Age: 23 Year
  Sex: Female
  Weight: 65 kg

DRUGS (3)
  1. ABILIFY [Suspect]
     Active Substance: ARIPIPRAZOLE
     Indication: Schizophrenia
     Dosage: 6 MG X ONCE/DAY
     Route: 048
     Dates: start: 201312, end: 202109
  2. ATARAX-P [HYDROXYZINE EMBONATE] [Concomitant]
     Indication: Product used for unknown indication
     Dosage: UNK
     Route: 048
     Dates: start: 201010, end: 202107
  3. ALLEGRA [Concomitant]
     Active Substance: FEXOFENADINE HYDROCHLORIDE
     Indication: Product used for unknown indication
     Dosage: UNK
     Route: 048
     Dates: start: 2010, end: 2021

REACTIONS (3)
  - Blepharospasm [Recovering/Resolving]
  - Photophobia [Recovering/Resolving]
  - Road traffic accident [Unknown]

NARRATIVE: CASE EVENT DATE: 20200801
